FAERS Safety Report 11977606 (Version 6)
Quarter: 2017Q1

REPORT INFORMATION
  Report Type: Spontaneous
  Country: US (occurrence: US)
  Receive Date: 20160129
  Receipt Date: 20170208
  Transmission Date: 20170428
  Serious: Yes (Hospitalization)
  Sender: FDA-Public Use
  Company Number: US-PFIZER INC-2016043204

PATIENT
  Age: 70 Year
  Sex: Female
  Weight: 58 kg

DRUGS (21)
  1. LEVOTHYROXINE. [Concomitant]
     Active Substance: LEVOTHYROXINE
     Dosage: 75 UG, 1X/DAY (AS PRESCRIBED)
     Route: 048
     Dates: start: 1970
  2. LYRICA [Suspect]
     Active Substance: PREGABALIN
     Indication: TRIGEMINAL NEURALGIA
     Dosage: 200 MG, 3X/DAY
     Route: 048
  3. LYRICA [Suspect]
     Active Substance: PREGABALIN
     Dosage: 200 MG, 4X/DAY
     Dates: start: 2012
  4. ERYTHROMYCIN. [Concomitant]
     Active Substance: ERYTHROMYCIN
     Dosage: 3X/DAY (AS PRESCRIBED; 1 APP, EYE, LEFT)
     Route: 047
     Dates: start: 2008
  5. TOPROL XL [Concomitant]
     Active Substance: METOPROLOL SUCCINATE
     Dosage: 1 DF, 1X/DAY (AS PRESCRIBED)
     Route: 048
     Dates: start: 2006
  6. CENTRUM SILVER [Concomitant]
     Active Substance: MINERALS\VITAMINS
     Dosage: 1 DF, 1X/DAY [AS PRESCRIBED]
     Route: 048
     Dates: start: 1980
  7. CHOLESTYRAMINE. [Concomitant]
     Active Substance: CHOLESTYRAMINE
     Dosage: 2X/DAY (AS PRESCRIBED; 4G/5G= 1 PACKET)
     Route: 048
     Dates: start: 2003, end: 2015
  8. VITAMIN E [Concomitant]
     Active Substance: .ALPHA.-TOCOPHEROL
     Dosage: 1 CAPSULE, 1X/DAY
     Route: 048
     Dates: start: 1999
  9. CILOXAN [Concomitant]
     Active Substance: CIPROFLOXACIN HYDROCHLORIDE
     Dosage: 1X/DAY (AS PRESCRIBED; 0.5 INCH, EYE LEFT)
     Route: 047
     Dates: start: 2003
  10. FUROSEMIDE. [Concomitant]
     Active Substance: FUROSEMIDE
     Dosage: 1 DF, 1X/DAY (EVERY THURS)
     Route: 048
     Dates: start: 2008
  11. TRILEPTAL [Concomitant]
     Active Substance: OXCARBAZEPINE
     Dosage: UNK
     Dates: end: 2014
  12. BACLOFEN. [Concomitant]
     Active Substance: BACLOFEN
     Dosage: UNK
     Dates: start: 2008, end: 2008
  13. POTASSIUM CHLORIDE. [Concomitant]
     Active Substance: POTASSIUM CHLORIDE
     Dosage: 1 DF, 1X/DAY
     Route: 048
     Dates: start: 2001
  14. TEGRETOL [Concomitant]
     Active Substance: CARBAMAZEPINE
     Dosage: 50 MG, 1X/DAY TAKEN OCCASIONALLY (AS PRESCRIBED; 100 MG- 50 MG= 0.5 TAB)
     Route: 048
     Dates: start: 2009
  15. DOXYCYCLINE. [Concomitant]
     Active Substance: DOXYCYCLINE
     Dosage: 50 MG ONCE A DAY
     Route: 048
     Dates: start: 2006
  16. BACLOFEN. [Concomitant]
     Active Substance: BACLOFEN
     Dosage: UNK
     Dates: end: 2010
  17. THIAMINE. [Concomitant]
     Active Substance: THIAMINE
     Dosage: 100 MG, UNK (AS PRESCRIBED)
     Dates: start: 2001
  18. LYRICA [Suspect]
     Active Substance: PREGABALIN
     Indication: PAIN
     Dosage: 200 MG, 4X/DAY (AS PRESCRIBED)
     Route: 048
     Dates: start: 20160404
  19. VITAMIN D3 [Concomitant]
     Active Substance: CHOLECALCIFEROL
     Dosage: 2000 IU, 1X/DAY (AS PRESCRIBED)
     Route: 048
     Dates: start: 2004
  20. GABAPENTIN. [Concomitant]
     Active Substance: GABAPENTIN
     Dosage: 16 ML =800MG, 4X/DAY (AS PRESCRIBED)
     Route: 048
     Dates: start: 2013
  21. TRILEPTAL [Concomitant]
     Active Substance: OXCARBAZEPINE
     Dosage: 150 MG, 2X/DAY
     Dates: start: 2006, end: 2007

REACTIONS (3)
  - Nervous system disorder [Not Recovered/Not Resolved]
  - Prescribed overdose [Not Recovered/Not Resolved]
  - Blindness [Not Recovered/Not Resolved]

NARRATIVE: CASE EVENT DATE: 19990116
